FAERS Safety Report 10035795 (Version 1)
Quarter: 2014Q1

REPORT INFORMATION
  Report Type: Spontaneous
  Country: DK (occurrence: DK)
  Receive Date: 20140325
  Receipt Date: 20140325
  Transmission Date: 20141002
  Serious: Yes (Hospitalization)
  Sender: FDA-Public Use
  Company Number: DK-GLAXOSMITHKLINE-B0979439A

PATIENT
  Age: 60 Year
  Sex: Male

DRUGS (3)
  1. ZINACEF [Suspect]
     Indication: PNEUMONIA
     Route: 065
     Dates: start: 20100131
  2. DICLOCIL [Suspect]
     Indication: INFECTION PROPHYLAXIS
     Dates: start: 20100127
  3. AVELOX [Suspect]
     Indication: PNEUMONIA
     Dates: start: 20100201

REACTIONS (22)
  - Anaphylactic reaction [Not Recovered/Not Resolved]
  - Generalised erythema [Unknown]
  - Swollen tongue [Unknown]
  - Pharyngeal oedema [Unknown]
  - Local swelling [Unknown]
  - Ear swelling [Unknown]
  - Skin exfoliation [Unknown]
  - Tongue ulceration [Unknown]
  - Tongue haemorrhage [Unknown]
  - Oral pain [Unknown]
  - Oropharyngeal pain [Unknown]
  - Mouth ulceration [Unknown]
  - Headache [Unknown]
  - Arthralgia [Unknown]
  - Fatigue [Unknown]
  - Nail disorder [Unknown]
  - Psoriasis [Unknown]
  - Blister [Unknown]
  - Post-traumatic stress disorder [Unknown]
  - Dyspnoea [Unknown]
  - Joint stiffness [Unknown]
  - Depression [Unknown]
